FAERS Safety Report 5515389-X (Version None)
Quarter: 2007Q4

REPORT INFORMATION
  Report Type: 
  Country: None (occurrence: None)
  Receive Date: 20071109
  Receipt Date: 20071102
  Transmission Date: 20080405
  Serious: Yes (Life-Threatening)
  Sender: FDA-Public Use
  Company Number: TCI2007A04832

PATIENT
  Age: 57 Year
  Sex: Male

DRUGS (6)
  1. ACTOS [Suspect]
     Indication: TYPE 2 DIABETES MELLITUS
     Dosage: 15 MG (15 MG,1 D) PER ORAL
     Route: 048
     Dates: start: 20070423, end: 20070517
  2. PANSPORIN INTRAVENOUS 1GM. (CEFOTIAM HYDROCHLORIDE) [Concomitant]
  3. TEGRETOL [Concomitant]
  4. ZOLPIDEM TARTRATE [Concomitant]
  5. ZYRTEC [Concomitant]
  6. OMEGACIN (BIAPENEM) [Concomitant]

REACTIONS (7)
  - ACUTE RESPIRATORY FAILURE [None]
  - ATRIAL FIBRILLATION [None]
  - DYSPNOEA [None]
  - OLIGURIA [None]
  - PNEUMONIA [None]
  - UPPER RESPIRATORY TRACT INFLAMMATION [None]
  - WHEEZING [None]
